FAERS Safety Report 5564878-0 (Version None)
Quarter: 2007Q4

REPORT INFORMATION
  Report Type: 
  Country: None (occurrence: None)
  Receive Date: 20071214
  Receipt Date: 20071214
  Transmission Date: 20080405
  Serious: Yes (Other)
  Sender: FDA-Public Use
  Company Number: None

PATIENT
  Age: 52 Year
  Sex: Female
  Weight: 61.2356 kg

DRUGS (2)
  1. TRAZODONE HCL [Suspect]
     Indication: DEATH OF RELATIVE
     Dosage: 50 MG PRN AT BEDTIME PO
     Route: 048
     Dates: start: 20071211, end: 20071211
  2. TRAZODONE HCL [Suspect]
     Indication: INSOMNIA
     Dosage: 50 MG PRN AT BEDTIME PO
     Route: 048
     Dates: start: 20071211, end: 20071211

REACTIONS (4)
  - DYSPNOEA [None]
  - MIDDLE INSOMNIA [None]
  - NASAL CONGESTION [None]
  - SLEEP PARALYSIS [None]
